FAERS Safety Report 21382636 (Version 1)
Quarter: 2022Q3

REPORT INFORMATION
  Report Type: Spontaneous
  Country: US (occurrence: US)
  Receive Date: 20220927
  Receipt Date: 20220927
  Transmission Date: 20221027
  Serious: No
  Sender: FDA-Public Use
  Company Number: US-MYLANLABS-2022M1095333

PATIENT
  Sex: Female
  Weight: 77.11 kg

DRUGS (1)
  1. LEVOTHYROXINE SODIUM [Suspect]
     Active Substance: LEVOTHYROXINE SODIUM
     Indication: Hypothyroidism
     Dosage: 50 MICROGRAM, QD
     Route: 048

REACTIONS (6)
  - Dyspnoea [Unknown]
  - Swelling face [Unknown]
  - Fatigue [Unknown]
  - Pharyngeal swelling [Unknown]
  - Somnolence [Unknown]
  - Hypersensitivity [Unknown]
